FAERS Safety Report 5771371-9 (Version None)
Quarter: 2008Q2

REPORT INFORMATION
  Report Type: 
  Country: None (occurrence: None)
  Receive Date: 20080610
  Receipt Date: 20080602
  Transmission Date: 20081010
  Serious: Yes (Death)
  Sender: FDA-Public Use
  Company Number: 163-20785-08060091

PATIENT
  Age: 86 Year
  Sex: Male

DRUGS (1)
  1. THALOMID [Suspect]
     Indication: MULTIPLE MYELOMA
     Dosage: 50 MG, 1 IN 1 D, ORAL
     Route: 048
     Dates: start: 20080522, end: 20080501

REACTIONS (3)
  - BONE MARROW DISORDER [None]
  - NEOPLASM MALIGNANT [None]
  - PROSTATE CANCER [None]
